FAERS Safety Report 7219439-4 (Version None)
Quarter: 2011Q1

REPORT INFORMATION
  Report Type: 
  Country: None (occurrence: None)
  Receive Date: 20110111
  Receipt Date: 20110104
  Transmission Date: 20110831
  Serious: Yes (Hospitalization)
  Sender: FDA-Public Use
  Company Number: US-SANOFI-AVENTIS-2011SA001048

PATIENT
  Age: 69 Year
  Sex: Female
  Weight: 88 kg

DRUGS (2)
  1. COUMADIN [Concomitant]
  2. LOVENOX [Suspect]
     Indication: THROMBOSIS
     Route: 065
     Dates: start: 20100801

REACTIONS (5)
  - DEHYDRATION [None]
  - INTRA-ABDOMINAL HAEMATOMA [None]
  - INCOHERENT [None]
  - TRANSIENT ISCHAEMIC ATTACK [None]
  - SEPSIS [None]
